FAERS Safety Report 20992244 (Version 4)
Quarter: 2022Q4

REPORT INFORMATION
  Report Type: Report from Study
  Country: US (occurrence: US)
  Receive Date: 20220622
  Receipt Date: 20221026
  Transmission Date: 20230112
  Serious: Yes (Other)
  Sender: FDA-Public Use
  Company Number: US-NOVARTISPH-NVSC2022US137855

PATIENT
  Sex: Male

DRUGS (2)
  1. ENTRESTO [Suspect]
     Active Substance: SACUBITRIL\VALSARTAN
     Indication: Product used for unknown indication
     Dosage: UNK UNK, BID
     Route: 048
     Dates: start: 202205
  2. LASIX [Concomitant]
     Active Substance: FUROSEMIDE
     Indication: Product used for unknown indication
     Dosage: UNK
     Route: 065

REACTIONS (12)
  - Myocardial infarction [Unknown]
  - Weight decreased [Unknown]
  - Heart rate increased [Unknown]
  - Pallor [Unknown]
  - Dyspnoea exertional [Unknown]
  - Arthralgia [Recovered/Resolved]
  - Migraine [Recovered/Resolved]
  - Hyperhidrosis [Unknown]
  - Feeling hot [Unknown]
  - Asthenia [Unknown]
  - Hypotension [Recovering/Resolving]
  - Cough [Unknown]
